FAERS Safety Report 8845058 (Version 1)
Quarter: 2012Q4

REPORT INFORMATION
  Report Type: 
  Country: US (occurrence: US)
  Receive Date: 20121017
  Receipt Date: 20121017
  Transmission Date: 20130627
  Serious: Yes (Hospitalization)
  Sender: FDA-Public Use
  Company Number: US-PFIZER INC-2012254363

PATIENT
  Age: 54 Year
  Sex: Female
  Weight: 93.88 kg

DRUGS (1)
  1. REVATIO [Suspect]
     Indication: LUNG DISORDER
     Dosage: half a tablet three times a day
     Route: 048
     Dates: start: 201110

REACTIONS (1)
  - Gastric infection [Recovered/Resolved]
